FAERS Safety Report 5742112-6 (Version None)
Quarter: 2008Q2

REPORT INFORMATION
  Report Type: 
  Country: None (occurrence: None)
  Receive Date: 20080514
  Receipt Date: 20080514
  Transmission Date: 20081010
  Serious: Yes (Life-Threatening, Hospitalization)
  Sender: FDA-Public Use
  Company Number: None

PATIENT
  Age: 52 Year
  Sex: Male
  Weight: 108.8633 kg

DRUGS (1)
  1. CELEXA [Suspect]
     Indication: STRESS
     Dosage: 20 MG      ONCE DAILY  PO
     Route: 048
     Dates: start: 20071009, end: 20071010

REACTIONS (4)
  - EYE DISORDER [None]
  - OBSESSIVE THOUGHTS [None]
  - SEROTONIN SYNDROME [None]
  - SKIN BURNING SENSATION [None]
